FAERS Safety Report 7138381-0 (Version None)
Quarter: 2010Q4

REPORT INFORMATION
  Report Type: 
  Country: None (occurrence: None)
  Receive Date: 20101202
  Receipt Date: 20101202
  Transmission Date: 20110411
  Serious: Yes (Other)
  Sender: FDA-Public Use
  Company Number: None

PATIENT
  Age: 10 Year
  Sex: Male
  Weight: 40.8237 kg

DRUGS (1)
  1. CONCERTA [Suspect]
     Indication: ATTENTION DEFICIT/HYPERACTIVITY DISORDER
     Dosage: 2 TABS ONCE A DAY PO
     Route: 048
     Dates: start: 20070101, end: 20101130

REACTIONS (6)
  - DIARRHOEA [None]
  - FOOD INTOLERANCE [None]
  - HAEMATOCHEZIA [None]
  - MEDICATION RESIDUE [None]
  - MUCOUS STOOLS [None]
  - RECTAL HAEMORRHAGE [None]
